FAERS Safety Report 5565376-0 (Version None)
Quarter: 2007Q4

REPORT INFORMATION
  Report Type: 
  Country: None (occurrence: None)
  Receive Date: 20071213
  Receipt Date: 20071203
  Transmission Date: 20080405
  Serious: Yes (Death, Life-Threatening)
  Sender: FDA-Public Use
  Company Number: 2002-09-1351

PATIENT
  Age: 68 Year
  Sex: Male

DRUGS (6)
  1. INTRON A [Suspect]
     Indication: MALIGNANT MELANOMA
     Dosage: 1 MIU;BID;SC
     Route: 058
     Dates: start: 20020704, end: 20020731
  2. THALIDOMIDE [Suspect]
     Indication: MALIGNANT MELANOMA
     Dosage: 200 MG;HS;PO; 300 MG;HS;PO; 400 MG;HS;PO
     Route: 048
     Dates: start: 20020704, end: 20020710
  3. THALIDOMIDE [Suspect]
     Indication: MALIGNANT MELANOMA
     Dosage: 200 MG;HS;PO; 300 MG;HS;PO; 400 MG;HS;PO
     Route: 048
     Dates: start: 20020711, end: 20020717
  4. THALIDOMIDE [Suspect]
     Indication: MALIGNANT MELANOMA
     Dosage: 200 MG;HS;PO; 300 MG;HS;PO; 400 MG;HS;PO
     Route: 048
     Dates: start: 20020718, end: 20020724
  5. THALIDOMIDE [Suspect]
     Indication: MALIGNANT MELANOMA
     Dosage: 200 MG;HS;PO; 300 MG;HS;PO; 400 MG;HS;PO
     Route: 048
     Dates: start: 20020704, end: 20020731
  6. THALIDOMIDE [Suspect]
     Indication: MALIGNANT MELANOMA
     Dosage: 200 MG;HS;PO; 300 MG;HS;PO; 400 MG;HS;PO
     Route: 048
     Dates: start: 20020725, end: 20020731

REACTIONS (2)
  - EMBOLISM [None]
  - SUDDEN DEATH [None]
